APPROVED DRUG PRODUCT: VINCRISTINE SULFATE
Active Ingredient: VINCRISTINE SULFATE
Strength: 1MG/ML
Dosage Form/Route: INJECTABLE;INJECTION
Application: A076296 | Product #001
Applicant: FRESENIUS KABI USA LLC
Approved: Dec 20, 2002 | RLD: No | RS: No | Type: DISCN